FAERS Safety Report 16626268 (Version 1)
Quarter: 2019Q3

REPORT INFORMATION
  Report Type: Spontaneous
  Country: FR (occurrence: FR)
  Receive Date: 20190724
  Receipt Date: 20190724
  Transmission Date: 20191004
  Serious: Yes (Other)
  Sender: FDA-Public Use
  Company Number: FR-GRUNENTHAL-2019-16058

PATIENT
  Sex: Female
  Weight: 52 kg

DRUGS (1)
  1. QUTENZA [Suspect]
     Active Substance: CAPSAICIN
     Indication: PRODUCT USED FOR UNKNOWN INDICATION
     Dosage: UNK
     Dates: start: 201208, end: 20190604

REACTIONS (3)
  - Bronchial hyperreactivity [Unknown]
  - Occupational exposure to product [Unknown]
  - Condition aggravated [Unknown]
